FAERS Safety Report 5067401-2 (Version None)
Quarter: 2006Q3

REPORT INFORMATION
  Report Type: 
  Country: None (occurrence: None)
  Receive Date: 20060727
  Receipt Date: 20060711
  Transmission Date: 20061208
  Serious: Yes (Hospitalization)
  Sender: FDA-Public Use
  Company Number: DSA_28388_2006

PATIENT
  Age: 44 Year
  Sex: Female

DRUGS (3)
  1. LORAZEPAM [Suspect]
     Dosage: 10 TAB ONCE PO
     Route: 048
     Dates: start: 20060627, end: 20060627
  2. TEMAZEPAM [Suspect]
     Dosage: 200 MG ONCE PO
     Route: 048
     Dates: start: 20060627, end: 20060627
  3. ALCOHOL [Suspect]
     Dates: start: 20060627, end: 20060627

REACTIONS (7)
  - ALCOHOL USE [None]
  - BREATH ODOUR [None]
  - DISTURBANCE IN ATTENTION [None]
  - LABORATORY TEST ABNORMAL [None]
  - MULTIPLE DRUG OVERDOSE INTENTIONAL [None]
  - SOMNOLENCE [None]
  - SUICIDE ATTEMPT [None]
